FAERS Safety Report 10162132 (Version 4)
Quarter: 2015Q1

REPORT INFORMATION
  Report Type: Other
  Country: US (occurrence: US)
  Receive Date: 20140509
  Receipt Date: 20150319
  Transmission Date: 20150720
  Serious: Yes (Disabling)
  Sender: FDA-Public Use
  Company Number: US-ACORDA-ACO_103289_2014

PATIENT
  Sex: Female

DRUGS (1)
  1. AMPYRA [Suspect]
     Active Substance: DALFAMPRIDINE
     Indication: PRODUCT USED FOR UNKNOWN INDICATION
     Dosage: 10 MG, Q 12 HRS
     Route: 065
     Dates: start: 20130605

REACTIONS (6)
  - Bedridden [Unknown]
  - Pyrexia [Unknown]
  - Fatigue [Unknown]
  - Limb discomfort [Unknown]
  - Drug dose omission [Unknown]
  - Multiple sclerosis relapse [Unknown]
